FAERS Safety Report 4786073-5 (Version None)
Quarter: 2005Q4

REPORT INFORMATION
  Report Type: 
  Country: None (occurrence: None)
  Receive Date: 20051003
  Receipt Date: 20051003
  Transmission Date: 20060501
  Serious: Yes (Hospitalization, Other)
  Sender: FDA-Public Use
  Company Number: None

PATIENT
  Sex: Female
  Weight: 64.1 kg

DRUGS (2)
  1. CISPLATIN [Suspect]
     Indication: SMALL CELL LUNG CANCER STAGE UNSPECIFIED
     Dosage: SEE IMAGE
     Dates: start: 20050912, end: 20050912
  2. ETOPOSIDE [Suspect]
     Dosage: SEE IMAGE
     Dates: start: 20050912, end: 20050914

REACTIONS (4)
  - FEBRILE NEUTROPENIA [None]
  - MYALGIA [None]
  - PHARYNGOLARYNGEAL PAIN [None]
  - WHITE BLOOD CELL COUNT DECREASED [None]
